FAERS Safety Report 7973606-0 (Version None)
Quarter: 2011Q4

REPORT INFORMATION
  Report Type: 
  Country: None (occurrence: None)
  Receive Date: 20111201
  Receipt Date: 20111118
  Transmission Date: 20120403
  Serious: Yes (Other)
  Sender: FDA-Public Use
  Company Number: 2011SP054294

PATIENT
  Age: 17 Year
  Sex: Male

DRUGS (3)
  1. CELESTAMINE (BETAMETHASONE/DEXCHLORPHENIRAMINE MALEATE) (METAMETHASONE [Suspect]
     Indication: NASAL CONGESTION
     Dosage: ;PO
     Route: 048
     Dates: start: 20111108, end: 20111116
  2. BAYNAS [Concomitant]
  3. OLOPATADINE HCL [Concomitant]

REACTIONS (3)
  - LOGORRHOEA [None]
  - DELUSION [None]
  - AGITATION [None]
